FAERS Safety Report 16802145 (Version 2)
Quarter: 2020Q4

REPORT INFORMATION
  Report Type: Report from Study
  Country: US (occurrence: US)
  Receive Date: 20190912
  Receipt Date: 20201222
  Transmission Date: 20210113
  Serious: No
  Sender: FDA-Public Use
  Company Number: US-SA-2019SA252772

PATIENT

DRUGS (8)
  1. DUPILUMAB [Suspect]
     Active Substance: DUPILUMAB
     Indication: DERMATITIS ATOPIC
     Dosage: 300 MG, QOW
     Route: 058
     Dates: start: 20181023
  2. DUPILUMAB [Suspect]
     Active Substance: DUPILUMAB
     Indication: EYELID DISORDER
  3. DUPILUMAB [Suspect]
     Active Substance: DUPILUMAB
     Indication: ILLNESS
  4. DUPILUMAB [Suspect]
     Active Substance: DUPILUMAB
     Indication: ECZEMA
     Dosage: 300 MG, QOW
     Route: 058
     Dates: start: 2020
  5. DUPILUMAB [Suspect]
     Active Substance: DUPILUMAB
     Indication: THYROID DISORDER
     Dosage: 600 MG, 1X
     Route: 058
     Dates: start: 20201023, end: 20201023
  6. VITAMIN D [VITAMIN D NOS] [Concomitant]
     Active Substance: VITAMIN D NOS
     Dosage: 400 U
  7. RED YEAST RICE [Concomitant]
     Active Substance: DIETARY SUPPLEMENT
     Dosage: UNK
  8. DUPILUMAB [Suspect]
     Active Substance: DUPILUMAB
     Indication: ESSENTIAL HYPERTENSION

REACTIONS (3)
  - Eczema [Unknown]
  - Product use in unapproved indication [Unknown]
  - Hypoacusis [Not Recovered/Not Resolved]

NARRATIVE: CASE EVENT DATE: 20181023
